FAERS Safety Report 20673509 (Version 2)
Quarter: 2022Q2

REPORT INFORMATION
  Report Type: Spontaneous
  Country: AU (occurrence: AU)
  Receive Date: 20220405
  Receipt Date: 20220517
  Transmission Date: 20220720
  Serious: Yes (Death, Life-Threatening, Other)
  Sender: FDA-Public Use
  Company Number: AU-SA-SAC20220321000675

PATIENT
  Sex: Female

DRUGS (1)
  1. LIBTAYO [Suspect]
     Active Substance: CEMIPLIMAB-RWLC
     Indication: Product used for unknown indication
     Dosage: UNK
     Dates: end: 202203

REACTIONS (2)
  - Neoplasm malignant [Fatal]
  - Pneumonia [Unknown]

NARRATIVE: CASE EVENT DATE: 20220301
